FAERS Safety Report 7644691 (Version 7)
Quarter: 2014Q2

REPORT INFORMATION
  Report Type: Spontaneous
  Country: US (occurrence: US)
  Receive Date: 20101028
  Receipt Date: 20140501
  Transmission Date: 20141212
  Serious: Yes (Hospitalization, Other)
  Sender: FDA-Public Use
  Company Number: US-US-EMD SERONO, INC.-7023322

PATIENT
  Age: 53 Year
  Sex: Female

DRUGS (5)
  1. REBIF [Suspect]
     Indication: MULTIPLE SCLEROSIS
     Route: 058
     Dates: start: 20090516, end: 201010
  2. REBIF [Suspect]
     Route: 058
     Dates: end: 2011
  3. REBIF [Suspect]
     Route: 058
     Dates: start: 201109, end: 201402
  4. VITAMIN D [Concomitant]
     Indication: PRODUCT USED FOR UNKNOWN INDICATION
  5. CLARITIN [Concomitant]
     Indication: PRODUCT USED FOR UNKNOWN INDICATION

REACTIONS (3)
  - Breast cancer [Recovering/Resolving]
  - Metastases to lymph nodes [Not Recovered/Not Resolved]
  - Lymphoedema [Unknown]
